FAERS Safety Report 11921521 (Version 1)
Quarter: 2016Q1

REPORT INFORMATION
  Report Type: Spontaneous
  Country: US (occurrence: US)
  Receive Date: 20160115
  Receipt Date: 20160115
  Transmission Date: 20160526
  Serious: No
  Sender: FDA-Public Use
  Company Number: US-BAYER-2016-005769

PATIENT
  Age: 55 Year
  Sex: Female
  Weight: 93.88 kg

DRUGS (6)
  1. CYMBALTA [Concomitant]
     Active Substance: DULOXETINE HYDROCHLORIDE
  2. MIRALAX [Suspect]
     Active Substance: POLYETHYLENE GLYCOL 3350
     Dosage: 1 DF, BID
     Route: 048
     Dates: start: 201512
  3. TENOLOC [Concomitant]
  4. MIRALAX [Suspect]
     Active Substance: POLYETHYLENE GLYCOL 3350
     Dosage: 1 DF, QD
     Route: 048
     Dates: start: 201512
  5. VICODIN [Concomitant]
     Active Substance: ACETAMINOPHEN\HYDROCODONE BITARTRATE
  6. KLONOPIN [Concomitant]
     Active Substance: CLONAZEPAM

REACTIONS (7)
  - Constipation [None]
  - Product use issue [None]
  - Nausea [Not Recovered/Not Resolved]
  - Abdominal distension [Not Recovered/Not Resolved]
  - Haemorrhoids thrombosed [None]
  - Faecal volume decreased [None]
  - Drug effect decreased [None]

NARRATIVE: CASE EVENT DATE: 201512
